FAERS Safety Report 11410197 (Version 2)
Quarter: 2015Q3

REPORT INFORMATION
  Report Type: Spontaneous
  Country: JP (occurrence: JP)
  Receive Date: 20150824
  Receipt Date: 20150901
  Transmission Date: 20151125
  Serious: Yes (Other)
  Sender: FDA-Public Use
  Company Number: JP-PFIZER INC-2015277733

PATIENT
  Sex: Female

DRUGS (3)
  1. EVOXAC [Concomitant]
     Active Substance: CEVIMELINE HYDROCHLORIDE
     Dosage: UNK, WEEKLY
     Route: 048
     Dates: start: 201412
  2. CABERGOLINE. [Suspect]
     Active Substance: CABERGOLINE
     Dosage: 0.25 MG, TWICE A DAY, EVERY TWO DAYS
     Route: 048
  3. CABERGOLINE. [Suspect]
     Active Substance: CABERGOLINE
     Indication: ACROMEGALY
     Dosage: 0.25 MG, TWICE A DAY, EVERY THREE DAYS
     Route: 048

REACTIONS (5)
  - Dental caries [Unknown]
  - Seizure [Unknown]
  - Hypotension [Unknown]
  - Depressed mood [Unknown]
  - Cachexia [Unknown]

NARRATIVE: CASE EVENT DATE: 20150205
